FAERS Safety Report 6696066-9 (Version None)
Quarter: 2010Q2

REPORT INFORMATION
  Report Type: 
  Country: None (occurrence: None)
  Receive Date: 20100426
  Receipt Date: 20100420
  Transmission Date: 20101027
  Serious: Yes (Death, Life-Threatening, Other)
  Sender: FDA-Public Use
  Company Number: PHHY2010JP15980

PATIENT
  Sex: Male

DRUGS (16)
  1. ZOLEDRONATE T29581+ [Suspect]
     Indication: MULTIPLE MYELOMA
     Dosage: 4 MG EVERY FOUR WEEKS
     Route: 042
     Dates: start: 20070611, end: 20070706
  2. ZOLEDRONATE T29581+ [Suspect]
     Dosage: 4 MG EVERY FIVE WEEKS
     Route: 042
     Dates: start: 20071003, end: 20071111
  3. ALKERAN [Suspect]
     Indication: MULTIPLE MYELOMA
     Dosage: 6 MG DAILY
     Route: 048
     Dates: start: 20070606, end: 20070910
  4. CYMERIN [Suspect]
     Indication: MULTIPLE MYELOMA
     Dosage: 50 MG DAILY
     Route: 065
     Dates: start: 20070606, end: 20070907
  5. ENDOXAN-P [Suspect]
     Indication: MULTIPLE MYELOMA
     Dosage: 100 MG DAILY
     Route: 048
     Dates: start: 20070606, end: 20070910
  6. PREDNISOLONE [Suspect]
     Indication: MULTIPLE MYELOMA
     Dosage: 45MG DAILY
     Route: 048
     Dates: start: 20070606, end: 20070910
  7. ALLOPURINOL [Concomitant]
     Dosage: 200 MG, UNK
     Route: 048
     Dates: start: 20070606, end: 20070928
  8. DIFLUCAN [Concomitant]
     Dosage: 100 MG, UNK
     Route: 048
     Dates: start: 20070606, end: 20080427
  9. COTRIM [Concomitant]
     Dosage: 100 MG, UNK
     Route: 048
     Dates: start: 20070606, end: 20080427
  10. ZANTAC [Concomitant]
     Dosage: 300 MG, UNK
     Route: 048
     Dates: start: 20070606, end: 20080527
  11. MUCOSTA [Concomitant]
     Dosage: 300 MG, UNK
     Route: 048
     Dates: start: 20070606, end: 20080527
  12. MAXIPIME [Concomitant]
     Dosage: 2 G, UNK
     Route: 065
     Dates: start: 20070617, end: 20070620
  13. VELCADE [Concomitant]
     Indication: MULTIPLE MYELOMA
     Dosage: 1.60 MG, UNK
     Route: 065
     Dates: start: 20071018, end: 20071221
  14. DECADRON [Concomitant]
     Indication: MULTIPLE MYELOMA
     Dosage: 20 MG, UNK
     Route: 065
     Dates: start: 20071018, end: 20071221
  15. DAUNOMYCIN [Concomitant]
     Dosage: 40 MG/M2, UNK
     Route: 065
     Dates: start: 20080112, end: 20080116
  16. CYLOCIDE [Concomitant]
     Dosage: 200 MG/M2, UNK
     Route: 065
     Dates: start: 20080112, end: 20080116

REACTIONS (4)
  - ACUTE MYELOID LEUKAEMIA [None]
  - FEBRILE NEUTROPENIA [None]
  - MULTIPLE MYELOMA [None]
  - SEPTIC SHOCK [None]
